FAERS Safety Report 12269108 (Version 2)
Quarter: 2016Q2

REPORT INFORMATION
  Report Type: Spontaneous
  Country: BE (occurrence: BE)
  Receive Date: 20160414
  Receipt Date: 20160520
  Transmission Date: 20160815
  Serious: Yes (Other)
  Sender: FDA-Public Use
  Company Number: BE-BAYER-2016-038432

PATIENT
  Age: 23 Year
  Sex: Female

DRUGS (1)
  1. JAYDESS 13,5 MG [Suspect]
     Active Substance: LEVONORGESTREL
     Dosage: 14 MCG/24HR, CONT
     Route: 015
     Dates: start: 20150703, end: 20160225

REACTIONS (3)
  - Ectopic pregnancy with contraceptive device [None]
  - Oophorectomy [None]
  - Drug ineffective [None]

NARRATIVE: CASE EVENT DATE: 20160222
